FAERS Safety Report 8517443 (Version 3)
Quarter: 2015Q1

REPORT INFORMATION
  Report Type: Spontaneous
  Country: US (occurrence: US)
  Receive Date: 20120417
  Receipt Date: 20150121
  Transmission Date: 20150721
  Serious: Yes (Hospitalization, Other)
  Sender: FDA-Public Use
  Company Number: US-ASTRAZENECA-2011SE12354

PATIENT
  Age: 62 Year
  Sex: Female
  Weight: 83 kg

DRUGS (4)
  1. NEXIUM [Suspect]
     Active Substance: ESOMEPRAZOLE MAGNESIUM
     Indication: GASTROOESOPHAGEAL REFLUX DISEASE
     Route: 048
     Dates: start: 2001
  2. NEXIUM [Suspect]
     Active Substance: ESOMEPRAZOLE MAGNESIUM
     Indication: GASTROOESOPHAGEAL REFLUX DISEASE
     Route: 048
     Dates: start: 2011, end: 20110307
  3. PRILOSEC [Suspect]
     Active Substance: OMEPRAZOLE MAGNESIUM
     Indication: GASTROOESOPHAGEAL REFLUX DISEASE
     Route: 048
     Dates: start: 1994, end: 2001
  4. NEXIUM [Suspect]
     Active Substance: ESOMEPRAZOLE MAGNESIUM
     Indication: GASTROOESOPHAGEAL REFLUX DISEASE
     Route: 048

REACTIONS (20)
  - Spinal pain [Unknown]
  - Heart valve incompetence [Unknown]
  - Off label use [Unknown]
  - Gastrooesophageal reflux disease [Unknown]
  - Abdominal pain upper [Unknown]
  - Back pain [Unknown]
  - Diarrhoea [Unknown]
  - Malaise [Unknown]
  - Endometrial cancer [Unknown]
  - Nasopharyngitis [Unknown]
  - Exostosis [Unknown]
  - Tremor [Unknown]
  - Drug ineffective [Unknown]
  - Intentional product misuse [Unknown]
  - Osteoporosis [Unknown]
  - Malaise [Unknown]
  - Thyroid disorder [Unknown]
  - Throat irritation [Unknown]
  - Alopecia [Unknown]
  - Spinal column stenosis [Unknown]

NARRATIVE: CASE EVENT DATE: 1994
